FAERS Safety Report 8936003 (Version 1)
Quarter: 2012Q4

REPORT INFORMATION
  Report Type: 
  Country: US (occurrence: US)
  Receive Date: 20121130
  Receipt Date: 20121130
  Transmission Date: 20130627
  Serious: No
  Sender: FDA-Public Use
  Company Number: US-PFIZER INC-2004061454

PATIENT
  Age: 48 Year
  Sex: Female
  Weight: 65.77 kg

DRUGS (2)
  1. IBUPROFEN [Suspect]
     Dosage: UNK
     Route: 048
  2. MOTRIN [Suspect]
     Dosage: UNK
     Route: 048

REACTIONS (3)
  - Swelling [Unknown]
  - Abdominal pain upper [Unknown]
  - Abdominal discomfort [Unknown]
